FAERS Safety Report 11756027 (Version 1)
Quarter: 2015Q4

REPORT INFORMATION
  Report Type: Spontaneous
  Country: JP (occurrence: JP)
  Receive Date: 20151119
  Receipt Date: 20151119
  Transmission Date: 20160304
  Serious: Yes (Life-Threatening, Hospitalization, Other)
  Sender: FDA-Public Use
  Company Number: JP-PFIZER INC-2015369989

PATIENT
  Age: 80 Year
  Sex: Female

DRUGS (11)
  1. OLMETEC [Concomitant]
     Active Substance: OLMESARTAN MEDOXOMIL
     Indication: HYPERTENSION
     Dosage: 20 MG, 1X/DAY
     Route: 048
  2. DEPAS [Concomitant]
     Active Substance: ETIZOLAM
     Indication: NEUROSIS
     Dosage: 0.5 MG, 3X/DAY
     Route: 048
  3. SUNRYTHM [Concomitant]
     Active Substance: PILSICAINIDE HYDROCHLORIDE
     Indication: ATRIAL FIBRILLATION
     Dosage: 50 MG, 3X/DAY
     Route: 048
  4. PURSENNID [Concomitant]
     Active Substance: SENNOSIDES A AND B
     Indication: CONSTIPATION
     Dosage: 24 MG, 1X/DAY
     Route: 048
  5. LYRICA [Suspect]
     Active Substance: PREGABALIN
     Indication: NEURALGIA
     Dosage: 75 MG, 1X/DAY
     Route: 048
     Dates: start: 20151006
  6. PRANLUKAST [Concomitant]
     Active Substance: PRANLUKAST
     Indication: ASTHMA
     Dosage: 112.5 MG, 2X/DAY
     Route: 048
  7. ATORVASTATIN [Concomitant]
     Active Substance: ATORVASTATIN
     Indication: DYSLIPIDAEMIA
     Dosage: 10 MG, 1X/DAY
     Route: 048
  8. CARVEDILOL. [Concomitant]
     Active Substance: CARVEDILOL
     Indication: HYPERTENSION
     Dosage: 10 MG, 1X/DAY
     Route: 048
  9. PROMAC [Concomitant]
     Active Substance: NITROFURANTOIN
     Indication: GASTRIC ULCER
     Dosage: 0.5 G, 2X/DAY
     Route: 048
  10. PAROXETINE [Concomitant]
     Active Substance: PAROXETINE\PAROXETINE HYDROCHLORIDE
     Indication: DEPRESSION
     Dosage: 5 MG, 2X/DAY
     Route: 048
  11. ZOLPIDEM TARTRATE. [Concomitant]
     Active Substance: ZOLPIDEM TARTRATE
     Indication: INSOMNIA
     Dosage: 5 MG, 1X/DAY
     Route: 048

REACTIONS (4)
  - Urinary retention [Recovered/Resolved with Sequelae]
  - Pyelonephritis [Recovered/Resolved with Sequelae]
  - Tachycardia [Unknown]
  - Septic shock [Recovered/Resolved with Sequelae]

NARRATIVE: CASE EVENT DATE: 201510
